FAERS Safety Report 18675873 (Version 1)
Quarter: 2020Q4

REPORT INFORMATION
  Report Type: Spontaneous
  Country: US (occurrence: US)
  Receive Date: 20201229
  Receipt Date: 20201229
  Transmission Date: 20210114
  Serious: No
  Sender: FDA-Public Use
  Company Number: US-LUPIN PHARMACEUTICALS INC.-2020-05852

PATIENT
  Sex: Male

DRUGS (1)
  1. DOXYCYCLINE CAPSULES USP100 MG [Suspect]
     Active Substance: DOXYCYCLINE
     Indication: PRODUCT USED FOR UNKNOWN INDICATION
     Dosage: UNK (TWO CAPSULES)
     Route: 065

REACTIONS (3)
  - No adverse event [Unknown]
  - Dysphagia [Unknown]
  - Wrong technique in product usage process [Unknown]
